FAERS Safety Report 8228651-7 (Version None)
Quarter: 2012Q1

REPORT INFORMATION
  Report Type: 
  Country: None (occurrence: None)
  Receive Date: 20120322
  Receipt Date: 20110215
  Transmission Date: 20120608
  Serious: Yes (Life-Threatening, Hospitalization)
  Sender: FDA-Public Use
  Company Number: US-BRISTOL-MYERS SQUIBB COMPANY-15534431

PATIENT
  Age: 70 Year
  Sex: Male

DRUGS (5)
  1. LISINOPRIL [Concomitant]
  2. BENADRYL [Concomitant]
     Indication: PREMEDICATION
  3. INSULIN HUMULIN [Concomitant]
     Dosage: 1 DF: 70/30
  4. ASPIRIN [Concomitant]
  5. ERBITUX [Suspect]
     Indication: HEAD AND NECK CANCER
     Dosage: 1INFUSION 575 MG WEEK LOT:09C00511B EXP DATE:NOV2012.
     Route: 042
     Dates: start: 20110207

REACTIONS (4)
  - LOSS OF CONSCIOUSNESS [None]
  - RESPIRATORY DISTRESS [None]
  - HYPOTENSION [None]
  - FLUSHING [None]
